FAERS Safety Report 6254137-5 (Version None)
Quarter: 2009Q3

REPORT INFORMATION
  Report Type: 
  Country: None (occurrence: None)
  Receive Date: 20090702
  Receipt Date: 20090624
  Transmission Date: 20100115
  Serious: Yes (Other)
  Sender: FDA-Public Use
  Company Number: DE-BAYER-200921004GPV

PATIENT
  Age: 68 Year
  Sex: Male
  Weight: 103 kg

DRUGS (4)
  1. AVELOX [Suspect]
     Indication: BRONCHITIS BACTERIAL
     Dosage: TOTAL DAILY DOSE: 400 MG  UNIT DOSE: 400 MG
     Route: 065
     Dates: start: 20090418, end: 20090418
  2. ALLERGOSPASMIN [Concomitant]
     Dosage: PERMANENT INTAKE
     Route: 055
  3. VOLTAREN 25 [Concomitant]
     Dosage: PERMANENT INTAKE
     Route: 048
  4. SEREVENT [Concomitant]
     Dosage: PERMANENT INTAKE
     Route: 055

REACTIONS (3)
  - ABASIA [None]
  - DIZZINESS [None]
  - HEADACHE [None]
